FAERS Safety Report 5794969-0 (Version None)
Quarter: 2008Q2

REPORT INFORMATION
  Report Type: 
  Country: None (occurrence: None)
  Receive Date: 20080630
  Receipt Date: 20080617
  Transmission Date: 20081010
  Serious: Yes (Death)
  Sender: FDA-Public Use
  Company Number: RS-ROCHE-570647

PATIENT
  Age: 50 Year
  Sex: Male

DRUGS (5)
  1. MYCOPHENOLATE MOFETIL [Suspect]
     Route: 048
  2. RECORMON [Concomitant]
     Dosage: DOSAGE: 3 X 2000 I.J.
  3. CYCLOSPORINE [Concomitant]
  4. PREDNISOLONE [Concomitant]
  5. FE [Concomitant]

REACTIONS (1)
  - SUDDEN DEATH [None]
